FAERS Safety Report 8852151 (Version 4)
Quarter: 2012Q4

REPORT INFORMATION
  Report Type: 
  Country: JP (occurrence: JP)
  Receive Date: 20121022
  Receipt Date: 20121116
  Transmission Date: 20130627
  Serious: Yes (Other)
  Sender: FDA-Public Use
  Company Number: JP-PFIZER INC-2012259425

PATIENT
  Age: 79 Year
  Sex: Female

DRUGS (5)
  1. CELECOX [Suspect]
     Indication: LOW BACK PAIN
     Dosage: 100 mg, 2x/day
     Route: 048
     Dates: start: 20120928
  2. NORVASC [Concomitant]
     Dosage: 5 mg, 1x/day
     Route: 048
  3. LENIMEC [Concomitant]
     Dosage: 2.5 mg, 1x/day
     Route: 048
  4. MUCOSTA [Concomitant]
  5. LOXONIN [Concomitant]
     Route: 062

REACTIONS (2)
  - Eczema [Unknown]
  - Pyrexia [Unknown]
